FAERS Safety Report 5792683-9 (Version None)
Quarter: 2008Q2

REPORT INFORMATION
  Report Type: 
  Country: None (occurrence: None)
  Receive Date: 20080624
  Receipt Date: 20080609
  Transmission Date: 20081010
  Serious: Yes (Hospitalization)
  Sender: FDA-Public Use
  Company Number: 2008001078

PATIENT
  Sex: Female
  Weight: 48.9885 kg

DRUGS (3)
  1. TARCEVA [Suspect]
     Indication: NON-SMALL CELL LUNG CANCER
     Dosage: 150 MG ,ORAL
     Route: 048
     Dates: start: 20080101
  2. PRILOSEC [Concomitant]
  3. ADVIL [Concomitant]

REACTIONS (14)
  - ABDOMINAL HERNIA [None]
  - ANOREXIA [None]
  - ASTHENIA [None]
  - BLOOD POTASSIUM DECREASED [None]
  - BRADYPHRENIA [None]
  - CONDITION AGGRAVATED [None]
  - CONSTIPATION [None]
  - DIARRHOEA [None]
  - DIVERTICULITIS [None]
  - HAEMATOCHEZIA [None]
  - IMPAIRED DRIVING ABILITY [None]
  - LETHARGY [None]
  - RASH [None]
  - WEIGHT DECREASED [None]
